FAERS Safety Report 6581482-6 (Version None)
Quarter: 2010Q1

REPORT INFORMATION
  Report Type: 
  Country: None (occurrence: None)
  Receive Date: 20100215
  Receipt Date: 20100203
  Transmission Date: 20100710
  Serious: Yes (Hospitalization)
  Sender: FDA-Public Use
  Company Number: B0618975A

PATIENT
  Sex: Female
  Weight: 52 kg

DRUGS (3)
  1. ZOPHREN [Suspect]
     Indication: PROPHYLAXIS
     Route: 042
     Dates: start: 20091217, end: 20091217
  2. ARACYTINE [Suspect]
     Dosage: 200MGM2 PER DAY
     Route: 042
     Dates: start: 20091217, end: 20091217
  3. CARDIOXANE [Concomitant]
     Dosage: 1000MGM2 PER DAY
     Route: 065
     Dates: start: 20091217, end: 20091217

REACTIONS (2)
  - ATAXIA [None]
  - CEREBELLAR SYNDROME [None]
